FAERS Safety Report 5321420-7 (Version None)
Quarter: 2007Q2

REPORT INFORMATION
  Report Type: 
  Country: None (occurrence: None)
  Receive Date: 20070510
  Receipt Date: 20070502
  Transmission Date: 20071010
  Serious: Yes (Hospitalization, Other)
  Sender: FDA-Public Use
  Company Number: HQWYE953302MAY07

PATIENT
  Sex: Male

DRUGS (5)
  1. CORDARONE [Suspect]
     Indication: ATRIAL FIBRILLATION
     Route: 048
     Dates: start: 20020101, end: 20061222
  2. COAPROVEL [Concomitant]
     Dosage: UNSPECIFIED
     Route: 048
  3. ADALAT [Concomitant]
     Route: 048
  4. MAREVAN [Concomitant]
     Dosage: UNSPECIFIED
     Route: 048
  5. SELO-ZOK [Concomitant]
     Route: 048

REACTIONS (3)
  - CARDIAC FAILURE CONGESTIVE [None]
  - HYPERTHYROIDISM [None]
  - MYOCARDIAL INFARCTION [None]
